FAERS Safety Report 10203048 (Version 1)
Quarter: 2014Q2

REPORT INFORMATION
  Report Type: Other
  Country: NO (occurrence: NO)
  Receive Date: 20140529
  Receipt Date: 20140529
  Transmission Date: 20141212
  Serious: Yes (Hospitalization, Other)
  Sender: FDA-Public Use
  Company Number: NO-LUPIN PHARMACEUTICALS INC.-2014-01055

PATIENT
  Age: 16 Day
  Sex: Male
  Weight: 4.2 kg

DRUGS (9)
  1. LAMOTRIGINE [Suspect]
     Indication: EPILEPSY
     Route: 064
  2. LAMOTRIGINE [Suspect]
     Route: 064
  3. LAMOTRIGINE [Suspect]
     Route: 064
  4. LAMOTRIGINE [Suspect]
     Route: 063
  5. LAMOTRIGINE [Suspect]
     Route: 063
  6. LAMOTRIGINE [Suspect]
     Route: 063
  7. LAMOTRIGINE [Suspect]
     Route: 063
  8. LAMOTRIGINE [Suspect]
     Route: 063
  9. LAMOTRIGINE [Suspect]
     Route: 063

REACTIONS (3)
  - Apnoea [Recovered/Resolved]
  - Foetal exposure during pregnancy [Unknown]
  - Exposure during breast feeding [Unknown]
